FAERS Safety Report 10141393 (Version 1)
Quarter: 2014Q2

REPORT INFORMATION
  Report Type: Spontaneous
  Country: US (occurrence: US)
  Receive Date: 20140429
  Receipt Date: 20140429
  Transmission Date: 20141212
  Serious: No
  Sender: FDA-Public Use
  Company Number: US-PFIZER INC-2014115632

PATIENT
  Sex: Female

DRUGS (2)
  1. LYRICA [Suspect]
     Indication: FIBROMYALGIA
     Dosage: UNK, 2X/DAY
     Route: 048
     Dates: start: 2011, end: 2014
  2. LYRICA [Suspect]
     Indication: NEURALGIA

REACTIONS (3)
  - Gait disturbance [Unknown]
  - Speech disorder [Unknown]
  - Activities of daily living impaired [Unknown]
